FAERS Safety Report 8076161-2 (Version None)
Quarter: 2012Q1

REPORT INFORMATION
  Report Type: 
  Country: None (occurrence: None)
  Receive Date: 20120127
  Receipt Date: 20120119
  Transmission Date: 20120608
  Serious: Yes (Hospitalization, Other)
  Sender: FDA-Public Use
  Company Number: US-B.I. PHARMACEUTICALS,INC./RIDGEFIELD-2012-BP-00175BP

PATIENT
  Sex: Male

DRUGS (15)
  1. ZANTAC 150 [Suspect]
     Indication: DYSPEPSIA
     Dosage: 300 MG
     Route: 048
     Dates: start: 20070101, end: 20111101
  2. NORCO [Concomitant]
     Indication: PAIN IN EXTREMITY
     Dates: start: 20100801
  3. LIPITOR [Concomitant]
     Indication: BLOOD CHOLESTEROL INCREASED
  4. ZANTAC [Suspect]
     Dosage: 450 MG
     Route: 048
     Dates: start: 20120103, end: 20120103
  5. DILTIAZEM CD [Concomitant]
     Indication: HYPERTENSION
     Dosage: 180 MG
     Route: 048
  6. ONE DAY MULTIVITAMIN FOR MEN [Concomitant]
     Indication: STRESS
  7. SPIRIVA [Concomitant]
     Indication: ASTHMA
     Route: 055
     Dates: start: 19900101
  8. ALBUTEROL SULFATE [Concomitant]
  9. SIMVASTATIN [Concomitant]
  10. NEXIUM [Concomitant]
     Indication: DYSPEPSIA
     Dates: start: 20111101, end: 20111101
  11. NEBULIZERS [Concomitant]
     Indication: ASTHMA
     Route: 055
  12. LORAZEPAM [Concomitant]
     Indication: STRESS
  13. ZANTAC [Suspect]
     Indication: DYSPEPSIA
     Dosage: 300 MG
     Route: 048
     Dates: start: 20111101
  14. ADVAIR DISKUS 100/50 [Concomitant]
     Indication: ASTHMA
  15. IPRATROPIUM BROMIDE [Concomitant]

REACTIONS (5)
  - LUNG NEOPLASM MALIGNANT [None]
  - STAPHYLOCOCCAL INFECTION [None]
  - INCORRECT DOSE ADMINISTERED [None]
  - BONE NEOPLASM MALIGNANT [None]
  - DYSPEPSIA [None]
